FAERS Safety Report 17599131 (Version 1)
Quarter: 2020Q1

REPORT INFORMATION
  Report Type: Spontaneous
  Country: US (occurrence: US)
  Receive Date: 20200330
  Receipt Date: 20200330
  Transmission Date: 20200409
  Serious: No
  Sender: FDA-Public Use
  Company Number: None

PATIENT
  Age: 48 Year
  Sex: Male
  Weight: 126 kg

DRUGS (9)
  1. VALSARTAN 40MG [Suspect]
     Active Substance: VALSARTAN
  2. ALLOPURINOL. [Concomitant]
     Active Substance: ALLOPURINOL
  3. CPAP [Concomitant]
     Active Substance: DEVICE
  4. DULOXETINE. [Concomitant]
     Active Substance: DULOXETINE
  5. VIT D [Concomitant]
     Active Substance: VITAMIN D NOS
  6. MAGNESIUM [Concomitant]
     Active Substance: MAGNESIUM
  7. ZINC. [Concomitant]
     Active Substance: ZINC
  8. LOSARTAN POTASSIUM TABLETS USP 50 MG [Suspect]
     Active Substance: LOSARTAN POTASSIUM
     Indication: HYPERTENSION
     Dosage: ?          QUANTITY:1 TABLET(S);?
     Route: 048
     Dates: start: 20190915, end: 20191224
  9. VITAMIN C [Concomitant]
     Active Substance: ASCORBIC ACID

REACTIONS (3)
  - Middle insomnia [None]
  - Initial insomnia [None]
  - Condition aggravated [None]

NARRATIVE: CASE EVENT DATE: 20191125
